FAERS Safety Report 4527755-X (Version None)
Quarter: 2004Q4

REPORT INFORMATION
  Report Type: 
  Country: None (occurrence: None)
  Receive Date: 20041123
  Receipt Date: 20040322
  Transmission Date: 20050328
  Serious: Yes (Other)
  Sender: FDA-Public Use
  Company Number: 2003040028

PATIENT
  Age: 49 Year
  Sex: Male
  Weight: 152.4086 kg

DRUGS (1)
  1. LIPITOR [Suspect]
     Indication: ILL-DEFINED DISORDER

REACTIONS (13)
  - ATRIAL FLUTTER [None]
  - BACK PAIN [None]
  - BLOOD CREATINE PHOSPHOKINASE INCREASED [None]
  - CARDIOACTIVE DRUG LEVEL DECREASED [None]
  - CHEST DISCOMFORT [None]
  - DIABETES MELLITUS NON-INSULIN-DEPENDENT [None]
  - DIZZINESS [None]
  - HYPERTENSION [None]
  - OBESITY [None]
  - PAIN IN EXTREMITY [None]
  - SINUS TACHYCARDIA [None]
  - SUBCUTANEOUS ABSCESS [None]
  - TOBACCO ABUSE [None]
